FAERS Safety Report 5897300-5 (Version None)
Quarter: 2008Q3

REPORT INFORMATION
  Report Type: 
  Country: None (occurrence: None)
  Receive Date: 20080902
  Receipt Date: 20080714
  Transmission Date: 20090109
  Serious: Yes (Other)
  Sender: FDA-Public Use
  Company Number: 174476USA

PATIENT
  Age: 47 Year
  Sex: Male
  Weight: 95.2554 kg

DRUGS (1)
  1. PANTOPRAZOLE SODIUM [Suspect]
     Indication: BARRETT'S OESOPHAGUS
     Dosage: ONE DOSE GIVEN (40 MG,1 IN 12 HR),ORAL
     Route: 048
     Dates: start: 20080303, end: 20080303

REACTIONS (5)
  - ABDOMINAL PAIN UPPER [None]
  - DRUG INEFFECTIVE [None]
  - GASTROINTESTINAL PAIN [None]
  - IRRITABLE BOWEL SYNDROME [None]
  - VOMITING [None]
